FAERS Safety Report 6134379-X (Version None)
Quarter: 2009Q1

REPORT INFORMATION
  Report Type: 
  Country: None (occurrence: None)
  Receive Date: 20090327
  Receipt Date: 20090318
  Transmission Date: 20090719
  Serious: Yes (Other)
  Sender: FDA-Public Use
  Company Number: US-JNJFOC-20090305128

PATIENT
  Age: 46 Year
  Sex: Male
  Weight: 129.28 kg

DRUGS (6)
  1. TYLENOL COUGH AND SORE THROAT DAYTIME COOL BURST BERRY [Suspect]
     Indication: COUGH
     Route: 048
  2. TYLENOL COUGH AND SORE THROAT DAYTIME COOL BURST BERRY [Suspect]
     Indication: NASAL CONGESTION
     Route: 048
  3. AVALIDE [Concomitant]
     Indication: DIURETIC THERAPY
  4. AVALIDE [Concomitant]
     Indication: HYPERTENSION
  5. TEKTURNA [Concomitant]
     Indication: HYPERTENSION
  6. POTASSIUM CHLORIDE [Concomitant]
     Indication: MEDICAL DIET

REACTIONS (2)
  - DYSPNOEA [None]
  - HYPERSENSITIVITY [None]
